FAERS Safety Report 6985477-X (Version None)
Quarter: 2010Q3

REPORT INFORMATION
  Report Type: 
  Country: None (occurrence: None)
  Receive Date: 20100915
  Receipt Date: 20100906
  Transmission Date: 20110219
  Serious: Yes (Hospitalization)
  Sender: FDA-Public Use
  Company Number: B0631214A

PATIENT
  Sex: Female
  Weight: 61 kg

DRUGS (4)
  1. LAPATINIB [Suspect]
     Indication: BREAST CANCER
     Dosage: 1000MG PER DAY
     Route: 048
     Dates: start: 20091006
  2. DOCETAXEL [Suspect]
     Indication: BREAST CANCER
     Dosage: 100MGM2 PER DAY
     Route: 042
     Dates: start: 20100106
  3. CYCLOPHOSPHAMIDE [Suspect]
     Indication: BREAST CANCER
     Dosage: 600MGM2 PER DAY
     Route: 042
     Dates: start: 20091006
  4. FARMORUBICIN [Suspect]
     Indication: BREAST CANCER
     Dosage: 90MGM2 EVERY 3 WEEKS
     Route: 042
     Dates: start: 20091006

REACTIONS (2)
  - PYREXIA [None]
  - URINARY TRACT INFECTION [None]
